FAERS Safety Report 18696004 (Version 1)
Quarter: 2021Q1

REPORT INFORMATION
  Report Type: Spontaneous
  Country: US (occurrence: US)
  Receive Date: 20210104
  Receipt Date: 20210104
  Transmission Date: 20210419
  Serious: No
  Sender: FDA-Public Use
  Company Number: US-JAZZ-JPI-P-017663

PATIENT
  Age: 43 Year
  Sex: Female

DRUGS (4)
  1. BUPROPION HYDROCHLORIDE. [Concomitant]
     Active Substance: BUPROPION HYDROCHLORIDE
  2. XYREM [Suspect]
     Active Substance: SODIUM OXYBATE
     Indication: NARCOLEPSY
     Dosage: UNKNOWN TWICE NIGHTLY DOSE
     Route: 048
     Dates: start: 200904
  3. AMPHETAMINE SULFATE. [Concomitant]
     Active Substance: AMPHETAMINE SULFATE
  4. XYREM [Suspect]
     Active Substance: SODIUM OXYBATE
     Dosage: 4.5 GRAM, BID
     Route: 048
     Dates: end: 201306

REACTIONS (9)
  - Condition aggravated [Recovered/Resolved]
  - Respiration abnormal [Unknown]
  - Ehlers-Danlos syndrome [Recovered/Resolved]
  - Ocular vascular disorder [Unknown]
  - Blood pressure increased [Not Recovered/Not Resolved]
  - Abnormal sleep-related event [Unknown]
  - Generalised oedema [Not Recovered/Not Resolved]
  - Peripheral venous disease [Recovered/Resolved]
  - Visual impairment [Recovered/Resolved]

NARRATIVE: CASE EVENT DATE: 201104
